FAERS Safety Report 4871246-3 (Version None)
Quarter: 2005Q4

REPORT INFORMATION
  Report Type: 
  Country: None (occurrence: None)
  Receive Date: 20051229
  Receipt Date: 20051210
  Transmission Date: 20060501
  Serious: No
  Sender: FDA-Public Use
  Company Number: 2005-52400

PATIENT

DRUGS (1)
  1. ENDOSOL EXTRA [Suspect]
     Indication: EYE IRRIGATION
     Dosage: 500ML, ONCE, INTRAOCULAR 031
     Dates: start: 20051024

REACTIONS (2)
  - CORNEAL OEDEMA [None]
  - POST PROCEDURAL COMPLICATION [None]
